FAERS Safety Report 11833739 (Version 1)
Quarter: 2015Q4

REPORT INFORMATION
  Report Type: Spontaneous
  Country: US (occurrence: US)
  Receive Date: 20151214
  Receipt Date: 20151214
  Transmission Date: 20160305
  Serious: Yes (Hospitalization)
  Sender: FDA-Public Use
  Company Number: US-B.I. PHARMACEUTICALS,INC./RIDGEFIELD-2015-BI-68707BP

PATIENT
  Age: 65 Year
  Sex: Female
  Weight: 93 kg

DRUGS (17)
  1. BYSTOLIC [Concomitant]
     Active Substance: NEBIVOLOL HYDROCHLORIDE
     Indication: HYPERTENSION
     Dosage: 20 MG
     Route: 048
     Dates: start: 2012
  2. LORAZEPAM. [Concomitant]
     Active Substance: LORAZEPAM
     Indication: HYPERTENSION
  3. CLONIDINE. [Concomitant]
     Active Substance: CLONIDINE
     Indication: BLOOD PRESSURE SYSTOLIC INCREASED
     Dosage: 0.1 MG
     Route: 048
     Dates: start: 2011
  4. LORAZEPAM. [Concomitant]
     Active Substance: LORAZEPAM
     Indication: NERVE INJURY
     Dosage: 0.1 MG
     Route: 048
     Dates: start: 2013
  5. NOVOLOG [Concomitant]
     Active Substance: INSULIN ASPART
     Indication: DIABETES PROPHYLAXIS
     Dosage: STRENGTH: UNIT UNK
     Route: 058
     Dates: start: 2005
  6. MONTELUKAST [Concomitant]
     Active Substance: MONTELUKAST SODIUM
     Indication: ASTHMA
     Dosage: 10 MG
     Route: 048
     Dates: start: 2005
  7. EQUATE STOOL SOFTENER [Concomitant]
     Active Substance: CASANTHRANOL\DOCUSATE SODIUM
     Indication: CONSTIPATION
     Dosage: 100 MG
     Route: 048
     Dates: start: 201506
  8. CATAPRES-TTS [Suspect]
     Active Substance: CLONIDINE
     Indication: HYPERTENSION
     Dosage: 0.4286 MG
     Route: 061
     Dates: start: 201406
  9. LOSARTAN. [Concomitant]
     Active Substance: LOSARTAN
     Indication: HYPERTENSION
     Dosage: 37.5 MG
     Route: 048
     Dates: start: 2013
  10. AMLODIPINE [Concomitant]
     Active Substance: AMLODIPINE BESYLATE
     Indication: HYPERTENSION
     Dosage: 5 MG
     Route: 048
     Dates: start: 2013
  11. PRAVASTATIN [Concomitant]
     Active Substance: PRAVASTATIN\PRAVASTATIN SODIUM
     Indication: BLOOD CHOLESTEROL INCREASED
     Dosage: 40 MG
     Route: 048
     Dates: start: 2014
  12. VITAMIN D3 [Concomitant]
     Active Substance: CHOLECALCIFEROL
     Indication: VITAMIN D DEFICIENCY
     Dosage: 2000 U
     Route: 048
     Dates: start: 1995
  13. XEROLTO [Concomitant]
     Indication: ATRIAL FIBRILLATION
     Route: 065
  14. CLONAZEPAM. [Concomitant]
     Active Substance: CLONAZEPAM
     Indication: STRESS
     Dosage: 0.1 MG
     Route: 048
     Dates: start: 1992
  15. LANTUS [Concomitant]
     Active Substance: INSULIN GLARGINE
     Indication: DIABETES MELLITUS
     Dosage: 28 U
     Route: 058
     Dates: start: 2005
  16. LINZESS [Concomitant]
     Active Substance: LINACLOTIDE
     Indication: CONSTIPATION
     Dosage: 145 MG
     Route: 048
     Dates: start: 201506
  17. VITAMIN B12 [Concomitant]
     Active Substance: CYANOCOBALAMIN
     Indication: PRODUCT USED FOR UNKNOWN INDICATION
     Dosage: 500 MCG
     Route: 048
     Dates: start: 2012

REACTIONS (6)
  - Vein rupture [Not Recovered/Not Resolved]
  - Rash [Not Recovered/Not Resolved]
  - Electrolyte imbalance [Not Recovered/Not Resolved]
  - Hypertension [Not Recovered/Not Resolved]
  - Dehydration [Not Recovered/Not Resolved]
  - Blood potassium decreased [Not Recovered/Not Resolved]

NARRATIVE: CASE EVENT DATE: 201510
